FAERS Safety Report 4620007-9 (Version None)
Quarter: 2005Q1

REPORT INFORMATION
  Report Type: 
  Country: None (occurrence: None)
  Receive Date: 20050328
  Receipt Date: 20050316
  Transmission Date: 20050727
  Serious: Yes (Hospitalization)
  Sender: FDA-Public Use
  Company Number: FR-BRISTOL-MYERS SQUIBB COMPANY-12902565

PATIENT
  Age: 45 Year
  Sex: Male

DRUGS (8)
  1. ZERIT [Suspect]
     Indication: HIV INFECTION
     Route: 048
     Dates: start: 20000101, end: 20040630
  2. REYATAZ [Suspect]
     Indication: HIV INFECTION
     Dosage: THERAPY INTERRUPTED ON 30-JUN-2004, RESTARTED ON AN UNSPECIFIED DATE
     Route: 048
     Dates: start: 20020501
  3. NORVIR [Suspect]
     Indication: HIV INFECTION
     Dosage: THERAPY INTERRUPTED ON 30-JUN-2004, RESTARTED ON AN UNSPECIFIED DATE
     Route: 048
     Dates: start: 20020501
  4. ZIAGEN [Suspect]
     Indication: HIV INFECTION
     Route: 048
     Dates: start: 20020501, end: 20040630
  5. ZOCOR [Concomitant]
  6. CALCIDIA [Concomitant]
  7. KREDEX [Concomitant]
  8. ASPEGIC 1000 [Concomitant]

REACTIONS (1)
  - PANCREATITIS ACUTE [None]
